FAERS Safety Report 16306852 (Version 1)
Quarter: 2019Q2

REPORT INFORMATION
  Report Type: Spontaneous
  Country: US (occurrence: US)
  Receive Date: 20190513
  Receipt Date: 20190513
  Transmission Date: 20190711
  Serious: Yes (Other)
  Sender: FDA-Public Use
  Company Number: PHEH2019US020489

PATIENT
  Sex: Male

DRUGS (1)
  1. TASIGNA [Suspect]
     Active Substance: NILOTINIB
     Indication: CHRONIC MYELOID LEUKAEMIA
     Dosage: 2 DF, BID
     Route: 048
     Dates: start: 20160105

REACTIONS (6)
  - Chronic kidney disease [Unknown]
  - Vocal cord polyp [Unknown]
  - Dyspnoea [Unknown]
  - Rash [Unknown]
  - Acute myocardial infarction [Unknown]
  - Dysphonia [Unknown]
